FAERS Safety Report 17815721 (Version 1)
Quarter: 2020Q2

REPORT INFORMATION
  Report Type: Spontaneous
  Country: JP (occurrence: JP)
  Receive Date: 20200522
  Receipt Date: 20200522
  Transmission Date: 20200714
  Serious: Yes (Hospitalization, Other)
  Sender: FDA-Public Use
  Company Number: JP-ELI_LILLY_AND_COMPANY-JP202005005425

PATIENT
  Age: 23 Year
  Sex: Male
  Weight: 65 kg

DRUGS (5)
  1. INSULIN GLARGINE [Suspect]
     Active Substance: INSULIN GLARGINE
     Dosage: 1200 U, SINGLE
     Route: 058
  2. VILDAGLIPTIN [Concomitant]
     Active Substance: VILDAGLIPTIN
     Indication: TYPE 2 DIABETES MELLITUS
     Dosage: 100 MG, TID
     Route: 048
  3. INSULIN ASPART [Suspect]
     Active Substance: INSULIN ASPART
     Dosage: 900 U, SINGLE
     Route: 058
  4. INSULIN GLARGINE [Suspect]
     Active Substance: INSULIN GLARGINE
     Indication: TYPE 2 DIABETES MELLITUS
     Dosage: 16 U, DAILY
     Route: 058
  5. INSULIN ASPART [Suspect]
     Active Substance: INSULIN ASPART
     Indication: TYPE 2 DIABETES MELLITUS
     Dosage: 7 U, TID
     Route: 058

REACTIONS (5)
  - Blood potassium increased [Recovered/Resolved]
  - Hypoglycaemia [Unknown]
  - Injection site swelling [Unknown]
  - Intentional overdose [Unknown]
  - Suicide attempt [Unknown]
